FAERS Safety Report 4380688-4 (Version None)
Quarter: 2004Q2

REPORT INFORMATION
  Report Type: 
  Country: None (occurrence: None)
  Receive Date: 20040614
  Receipt Date: 20040609
  Transmission Date: 20050107
  Serious: Yes (Hospitalization, Other)
  Sender: FDA-Public Use
  Company Number: KII-2001-0004222

PATIENT
  Age: 40 Year
  Sex: Male

DRUGS (3)
  1. OXYCONTIN [Suspect]
     Indication: PAIN
     Dosage: 40 MG, BID
  2. CLONAZEPAM [Suspect]
     Dosage: 1 MG, BID
  3. AMBIEN [Suspect]
     Dosage: 5 MG, HS,

REACTIONS (6)
  - ASPHYXIA [None]
  - COMA [None]
  - HYPOTENSION [None]
  - LOSS OF CONSCIOUSNESS [None]
  - RESPIRATORY RATE DECREASED [None]
  - THERAPEUTIC AGENT TOXICITY [None]
